FAERS Safety Report 11786181 (Version 1)
Quarter: 2015Q4

REPORT INFORMATION
  Report Type: Report from Study
  Country: JP (occurrence: JP)
  Receive Date: 20151130
  Receipt Date: 20151130
  Transmission Date: 20160305
  Serious: Yes (Other)
  Sender: FDA-Public Use
  Company Number: JP-ABBVIE-12P-087-0915655-00

PATIENT
  Age: 78 Year
  Sex: Male
  Weight: 56 kg

DRUGS (11)
  1. RHEUMATREX [Suspect]
     Active Substance: METHOTREXATE SODIUM
     Indication: RHEUMATOID ARTHRITIS
     Dosage: 6 MG/WEEK
     Route: 065
     Dates: start: 20070227, end: 20110207
  2. PREDNISOLONE. [Concomitant]
     Active Substance: PREDNISOLONE
     Dates: start: 20110809, end: 20120305
  3. LOXOPROFEN SODIUM HYDRATE [Concomitant]
     Active Substance: LOXOPROFEN SODIUM DIHYDRATE
     Indication: RHEUMATOID ARTHRITIS
     Route: 048
     Dates: start: 20110208
  4. HUMIRA [Suspect]
     Active Substance: ADALIMUMAB
     Indication: RHEUMATOID ARTHRITIS
     Route: 058
     Dates: start: 20120216, end: 20120304
  5. RHEUMATREX [Suspect]
     Active Substance: METHOTREXATE SODIUM
     Dosage: 8MG/WEEK
     Route: 065
     Dates: start: 20110208, end: 20120301
  6. MELOXICAM. [Concomitant]
     Active Substance: MELOXICAM
     Indication: RHEUMATOID ARTHRITIS
     Dosage: 10MG DAILY
     Route: 048
     Dates: start: 20090330
  7. BETAMETHASONE VALERATE W/GENTAMICIN SULFATE [Concomitant]
     Indication: DERMATITIS
     Dates: start: 20090616, end: 20090831
  8. PREDNISOLONE. [Concomitant]
     Active Substance: PREDNISOLONE
     Indication: RHEUMATOID ARTHRITIS
     Dates: start: 20071016, end: 20090330
  9. REBAMIPIDE [Concomitant]
     Active Substance: REBAMIPIDE
     Indication: GASTRITIS PROPHYLAXIS
     Route: 048
     Dates: start: 20110208
  10. RABEPRAZOLE SODIUM. [Concomitant]
     Active Substance: RABEPRAZOLE SODIUM
     Indication: RHEUMATOID ARTHRITIS
     Dosage: 10MG DAILY
     Route: 048
     Dates: start: 20090330
  11. PREDNISOLONE. [Concomitant]
     Active Substance: PREDNISOLONE
     Route: 048
     Dates: start: 20090331, end: 20110808

REACTIONS (5)
  - Atypical mycobacterial infection [Recovered/Resolved]
  - Malaise [Unknown]
  - Chest X-ray abnormal [Recovering/Resolving]
  - Pyrexia [Unknown]
  - Atypical mycobacterial infection [Recovering/Resolving]

NARRATIVE: CASE EVENT DATE: 20120216
